FAERS Safety Report 6256897-6 (Version None)
Quarter: 2009Q3

REPORT INFORMATION
  Report Type: 
  Country: None (occurrence: None)
  Receive Date: 20090706
  Receipt Date: 20090703
  Transmission Date: 20100115
  Serious: Yes (Other)
  Sender: FDA-Public Use
  Company Number: CA-JNJFOC-20090609346

PATIENT
  Age: 85 Year
  Sex: Female
  Weight: 43.09 kg

DRUGS (4)
  1. DURAGESIC-100 [Suspect]
     Route: 062
  2. DURAGESIC-100 [Suspect]
     Route: 062
  3. DURAGESIC-100 [Suspect]
     Indication: PAIN
     Route: 062
  4. DILAUDID [Concomitant]
     Indication: BREAKTHROUGH PAIN
     Route: 065

REACTIONS (5)
  - DIZZINESS [None]
  - INAPPROPRIATE SCHEDULE OF DRUG ADMINISTRATION [None]
  - MENIERE'S DISEASE [None]
  - OVERDOSE [None]
  - SOMNOLENCE [None]
